FAERS Safety Report 6240965-9 (Version None)
Quarter: 2009Q2

REPORT INFORMATION
  Report Type: 
  Country: None (occurrence: None)
  Receive Date: 20090623
  Receipt Date: 20090615
  Transmission Date: 20091009
  Serious: Yes (Other)
  Sender: FDA-Public Use
  Company Number: A0679756A

PATIENT
  Sex: Female

DRUGS (5)
  1. PAXIL CR [Suspect]
     Indication: IRRITABILITY
     Route: 048
     Dates: start: 20030521
  2. VITAMIN TAB [Concomitant]
  3. PRILOSEC [Concomitant]
  4. AVONEX [Concomitant]
  5. ROLAIDS [Concomitant]

REACTIONS (3)
  - ATRIAL SEPTAL DEFECT [None]
  - CONGENITAL ANOMALY [None]
  - DRUG EXPOSURE DURING PREGNANCY [None]
